FAERS Safety Report 6688801-0 (Version None)
Quarter: 2010Q2

REPORT INFORMATION
  Report Type: 
  Country: None (occurrence: None)
  Receive Date: 20100420
  Receipt Date: 20100414
  Transmission Date: 20101027
  Serious: Yes (Other)
  Sender: FDA-Public Use
  Company Number: JP-BRISTOL-MYERS SQUIBB COMPANY-15063233

PATIENT
  Age: 66 Year
  Sex: Female

DRUGS (2)
  1. MAXIPIME [Suspect]
     Indication: INFECTION
     Route: 041
     Dates: start: 20100403, end: 20100404
  2. VANCOMYCIN [Suspect]
     Route: 041
     Dates: start: 20100403, end: 20100404

REACTIONS (1)
  - ALTERED STATE OF CONSCIOUSNESS [None]
